FAERS Safety Report 8206843-0 (Version None)
Quarter: 2012Q1

REPORT INFORMATION
  Report Type: 
  Country: None (occurrence: None)
  Receive Date: 20120314
  Receipt Date: 20120302
  Transmission Date: 20120608
  Serious: Yes (Other)
  Sender: FDA-Public Use
  Company Number: JP-ELI_LILLY_AND_COMPANY-JP201109006872

PATIENT
  Age: 52 Year
  Sex: Female

DRUGS (3)
  1. HUMULIN 70/30 [Suspect]
     Indication: DIABETES MELLITUS
     Dosage: UNK
     Route: 058
     Dates: start: 19970101
  2. WARFARIN SODIUM [Concomitant]
     Indication: PELVIC VENOUS THROMBOSIS
     Dosage: UNK
     Route: 048
     Dates: start: 20101025, end: 20110901
  3. HUMULIN 70/30 [Suspect]
     Dosage: UNK
     Route: 058

REACTIONS (4)
  - HAEMORRHAGE [None]
  - ANAEMIA [None]
  - DRUG INEFFECTIVE [None]
  - HYPOGLYCAEMIA [None]
